FAERS Safety Report 13431150 (Version 1)
Quarter: 2017Q2

REPORT INFORMATION
  Report Type: Spontaneous
  Country: US (occurrence: US)
  Receive Date: 20170412
  Receipt Date: 20170412
  Transmission Date: 20170830
  Serious: Yes (Life-Threatening, Hospitalization)
  Sender: FDA-Public Use
  Company Number: None

PATIENT
  Age: 63 Year
  Sex: Male
  Weight: 102.15 kg

DRUGS (3)
  1. PACE MAKER [Concomitant]
  2. METOPROLOL 50MG [Suspect]
     Active Substance: METOPROLOL
     Indication: HYPERTENSION
     Dosage: 1 PILL ONCE A DAY BY MOUTH
     Route: 048
     Dates: start: 201504, end: 20161115
  3. AMLODOPINE [Concomitant]
     Active Substance: AMLODIPINE BESYLATE

REACTIONS (2)
  - Hypotension [None]
  - Loss of consciousness [None]

NARRATIVE: CASE EVENT DATE: 20161115
